FAERS Safety Report 4839914-7 (Version None)
Quarter: 2005Q4

REPORT INFORMATION
  Report Type: 
  Country: None (occurrence: None)
  Receive Date: 20051129
  Receipt Date: 20051123
  Transmission Date: 20060501
  Serious: Yes (Other)
  Sender: FDA-Public Use
  Company Number: AU-ROCHE-425977

PATIENT
  Age: 49 Year

DRUGS (1)
  1. ROCEPHIN [Suspect]
     Route: 042
     Dates: start: 20030627, end: 20030627

REACTIONS (6)
  - CHOKING SENSATION [None]
  - COMA [None]
  - HYPERSENSITIVITY [None]
  - NAUSEA [None]
  - PALLOR [None]
  - VOMITING [None]
